FAERS Safety Report 4846373-7 (Version None)
Quarter: 2005Q4

REPORT INFORMATION
  Report Type: 
  Country: None (occurrence: None)
  Receive Date: 20051206
  Receipt Date: 20051124
  Transmission Date: 20060501
  Serious: Yes (Death, Hospitalization)
  Sender: FDA-Public Use
  Company Number: FR-BRISTOL-MYERS SQUIBB COMPANY-13196837

PATIENT
  Age: 51 Year
  Sex: Male

DRUGS (4)
  1. AZACTAM [Suspect]
     Indication: PNEUMONIA
     Route: 042
     Dates: start: 20050708, end: 20050712
  2. VANCOMYCIN [Suspect]
     Indication: ENDOCARDITIS
     Route: 042
     Dates: start: 20050621, end: 20050716
  3. GENTAMICIN [Suspect]
     Indication: ENDOCARDITIS
     Route: 042
     Dates: start: 20050621, end: 20050712
  4. CIFLOX [Suspect]
     Indication: PNEUMONIA
     Route: 042
     Dates: start: 20050708, end: 20050712

REACTIONS (7)
  - ANURIA [None]
  - CREATININE RENAL CLEARANCE DECREASED [None]
  - DERMATITIS BULLOUS [None]
  - MULTI-ORGAN FAILURE [None]
  - PNEUMONITIS [None]
  - RASH [None]
  - TOXIC SKIN ERUPTION [None]
